FAERS Safety Report 4976557-9 (Version None)
Quarter: 2006Q2

REPORT INFORMATION
  Report Type: 
  Country: None (occurrence: None)
  Receive Date: 20060419
  Receipt Date: 20051003
  Transmission Date: 20061013
  Serious: Yes (Hospitalization)
  Sender: FDA-Public Use
  Company Number: US-MERCK-0510USA02724

PATIENT
  Age: 60 Year
  Sex: Male
  Weight: 107 kg

DRUGS (16)
  1. VIOXX [Suspect]
     Indication: ARTHRITIS
     Route: 048
     Dates: start: 20011119, end: 20030401
  2. ASPIRIN [Concomitant]
     Route: 048
  3. LIPITOR [Concomitant]
     Route: 048
  4. PRILOSEC [Concomitant]
     Route: 048
  5. FOLTX [Concomitant]
     Route: 048
  6. DURICEF [Concomitant]
     Route: 048
  7. LASIX [Concomitant]
     Route: 048
  8. K-DUR 10 [Concomitant]
     Route: 048
  9. VICODIN [Concomitant]
     Route: 048
  10. TRENTAL [Concomitant]
     Route: 048
  11. REGLAN [Concomitant]
     Route: 048
  12. IMDUR [Concomitant]
     Route: 048
  13. NORMODYNE [Concomitant]
     Route: 048
  14. NORVASC [Concomitant]
     Route: 048
  15. LABETALOL HYDROCHLORIDE [Concomitant]
     Route: 048
  16. CLARITIN [Concomitant]
     Route: 048

REACTIONS (17)
  - ACUTE MYOCARDIAL INFARCTION [None]
  - ANXIETY [None]
  - ARTERIOSCLEROSIS CORONARY ARTERY [None]
  - CARDIOVASCULAR DISORDER [None]
  - CHRONIC OBSTRUCTIVE PULMONARY DISEASE [None]
  - CORONARY ARTERY DISEASE [None]
  - CORONARY ARTERY OCCLUSION [None]
  - CORONARY ARTERY RESTENOSIS [None]
  - HERNIA [None]
  - HYPERLIPIDAEMIA [None]
  - HYPERTENSION [None]
  - INTERMITTENT CLAUDICATION [None]
  - ISCHAEMIC STROKE [None]
  - MYOCARDIAL ISCHAEMIA [None]
  - PERIPHERAL VASCULAR DISORDER [None]
  - PLEURAL EFFUSION [None]
  - VENTRICULAR DYSFUNCTION [None]
